FAERS Safety Report 5221481-X (Version None)
Quarter: 2007Q1

REPORT INFORMATION
  Report Type: 
  Country: None (occurrence: None)
  Receive Date: 20070126
  Receipt Date: 20070116
  Transmission Date: 20070707
  Serious: Yes (Hospitalization)
  Sender: FDA-Public Use
  Company Number: GB-PFIZER INC-2007004961

PATIENT
  Sex: Female

DRUGS (2)
  1. MISOPROSTOL [Suspect]
  2. MIFEPRISTONE [Suspect]
     Indication: ABORTION INDUCED
     Route: 048

REACTIONS (4)
  - DRUG INEFFECTIVE [None]
  - ENCEPHALITIS HERPES [None]
  - HAEMORRHAGE [None]
  - VASCULITIS CEREBRAL [None]
